FAERS Safety Report 6262090-3 (Version None)
Quarter: 2009Q3

REPORT INFORMATION
  Report Type: 
  Country: None (occurrence: None)
  Receive Date: 20090707
  Receipt Date: 20090707
  Transmission Date: 20100115
  Serious: Yes (Hospitalization)
  Sender: FDA-Public Use
  Company Number: None

PATIENT
  Age: 54 Year
  Sex: Female
  Weight: 68.0396 kg

DRUGS (1)
  1. ULTRAM ER [Suspect]
     Indication: MUSCLE STRAIN
     Dosage: 200 MG 1 IN 24 HRS 1 TIME
     Dates: start: 20090630, end: 20090630

REACTIONS (6)
  - ABASIA [None]
  - DIZZINESS [None]
  - FEELING ABNORMAL [None]
  - IMPAIRED WORK ABILITY [None]
  - NAUSEA [None]
  - VOMITING [None]
